FAERS Safety Report 24612618 (Version 2)
Quarter: 2025Q1

REPORT INFORMATION
  Report Type: Report from Study
  Country: CA (occurrence: CA)
  Receive Date: 20241113
  Receipt Date: 20250115
  Transmission Date: 20250409
  Serious: Yes (Life-Threatening, Other)
  Sender: CSL BEHRING
  Company Number: CA-BEH-2024169666

PATIENT
  Age: 20 Year
  Sex: Female
  Weight: 45.2 kg

DRUGS (4)
  1. BERINERT [Suspect]
     Active Substance: HUMAN C1-ESTERASE INHIBITOR
     Indication: Hereditary angioedema
     Dosage: 2000 INTERNATIONAL UNIT, QW
     Route: 058
     Dates: start: 20220101
  2. BERINERT [Suspect]
     Active Substance: HUMAN C1-ESTERASE INHIBITOR
     Indication: Prophylaxis
     Dosage: 2000 INTERNATIONAL UNIT, BIW
     Route: 058
  3. BERINERT [Suspect]
     Active Substance: HUMAN C1-ESTERASE INHIBITOR
     Indication: Prophylaxis
     Dosage: 2000 INTERNATIONAL UNIT, BIW
     Route: 058
     Dates: start: 20220101
  4. EMLA [Concomitant]
     Active Substance: LIDOCAINE\PRILOCAINE

REACTIONS (6)
  - Terminal state [Unknown]
  - Aphasia [Unknown]
  - Infusion site pain [Unknown]
  - Discomfort [Unknown]
  - Inappropriate schedule of product administration [Unknown]
  - Infusion site pain [Unknown]
